FAERS Safety Report 7323004-8 (Version None)
Quarter: 2011Q1

REPORT INFORMATION
  Report Type: 
  Country: None (occurrence: None)
  Receive Date: 20110217
  Receipt Date: 20110203
  Transmission Date: 20110831
  Serious: Yes (Other)
  Sender: FDA-Public Use
  Company Number: 2011AP000199

PATIENT
  Age: 58 Year
  Sex: Female

DRUGS (4)
  1. IREBESARTAN (IRBESARTAN) [Concomitant]
  2. ZOLPIDEM TARTRATE [Suspect]
     Indication: INSOMNIA
     Dosage: 5 MG;TAB_FILM;PO;QD
     Route: 048
     Dates: start: 20100316, end: 20101220
  3. SIMVASTATIN [Concomitant]
  4. LEVOTHYROXINE SODIUM [Concomitant]

REACTIONS (1)
  - GASTROINTESTINAL HAEMORRHAGE [None]
